FAERS Safety Report 18163363 (Version 4)
Quarter: 2020Q4

REPORT INFORMATION
  Report Type: Report from Study
  Country: FR (occurrence: FR)
  Receive Date: 20200818
  Receipt Date: 20201119
  Transmission Date: 20210113
  Serious: Yes (Hospitalization)
  Sender: FDA-Public Use
  Company Number: FR-TAKEDA-2020TUS034986

PATIENT
  Sex: Male

DRUGS (3)
  1. IXAZOMIB [Suspect]
     Active Substance: IXAZOMIB
     Indication: PLASMA CELL MYELOMA
     Dosage: 4 MILLIGRAM
     Route: 048
     Dates: start: 20200813
  2. DARATUMUMAB [Suspect]
     Active Substance: DARATUMUMAB
     Dosage: 1020 MILLIGRAM
     Route: 042
  3. DARATUMUMAB [Suspect]
     Active Substance: DARATUMUMAB
     Indication: PLASMA CELL MYELOMA
     Dosage: 1020 MILLIGRAM
     Route: 042
     Dates: start: 20200813, end: 20200813

REACTIONS (2)
  - Infusion related hypersensitivity reaction [Recovered/Resolved]
  - Nausea [Recovered/Resolved]

NARRATIVE: CASE EVENT DATE: 20200813
